FAERS Safety Report 9275205 (Version 1)
Quarter: 2013Q2

REPORT INFORMATION
  Report Type: Report from Study
  Country: US (occurrence: US)
  Receive Date: 20130507
  Receipt Date: 20130507
  Transmission Date: 20140414
  Serious: Yes (Hospitalization)
  Sender: FDA-Public Use
  Company Number: US-UCBSA-031389

PATIENT
  Age: 22 Year
  Sex: Male
  Weight: 60.32 kg

DRUGS (12)
  1. CIMZIA [Suspect]
     Indication: CROHN^S DISEASE
     Route: 058
     Dates: start: 20101223
  2. ZYRTEC [Concomitant]
     Route: 048
  3. CYANOCOBALAMIN [Concomitant]
     Dosage: 1000 MCG/ML
     Route: 058
     Dates: start: 20101116
  4. FOLIC ACID [Concomitant]
     Route: 048
     Dates: start: 20101116
  5. METHOTREXATE SODIUM [Concomitant]
     Route: 058
     Dates: start: 20110204, end: 2011
  6. METHOTREXATE SODIUM [Concomitant]
     Route: 058
     Dates: start: 2011
  7. METHOTREXATE SODIUM [Concomitant]
     Route: 058
     Dates: start: 20101116
  8. FLAGYL [Concomitant]
     Route: 048
     Dates: start: 20110405, end: 20110412
  9. BOOST PLUS [Concomitant]
     Indication: MEDICAL DIET
     Dosage: 3 CANS DAILY
     Route: 048
     Dates: start: 20091210
  10. PRILOSEC [Concomitant]
     Route: 048
  11. TOLEREX [Concomitant]
     Indication: MEDICAL DIET
     Dosage: 8 PACKET DAILY, 2500 KCAL/DAY
     Route: 048
     Dates: start: 20101031
  12. PREDNISONE [Concomitant]
     Dates: start: 20101112

REACTIONS (1)
  - Crohn^s disease [Recovered/Resolved]
